FAERS Safety Report 12567682 (Version 3)
Quarter: 2017Q1

REPORT INFORMATION
  Report Type: Spontaneous
  Country: US (occurrence: US)
  Receive Date: 20160718
  Receipt Date: 20170109
  Transmission Date: 20170428
  Serious: Yes (Death, Hospitalization)
  Sender: FDA-Public Use
  Company Number: US-BAUSCH-BL-2016-016934

PATIENT
  Age: 81 Year
  Sex: Male
  Weight: 106.69 kg

DRUGS (3)
  1. CUPRIMINE [Suspect]
     Active Substance: PENICILLAMINE
     Indication: HEPATO-LENTICULAR DEGENERATION
     Route: 048
     Dates: start: 201512
  2. LACTULOSE. [Concomitant]
     Active Substance: LACTULOSE
     Indication: BOWEL MOVEMENT IRREGULARITY
  3. POTASSIUM [Concomitant]
     Active Substance: POTASSIUM
     Indication: DIARRHOEA

REACTIONS (4)
  - Hepatic cirrhosis [Fatal]
  - Ammonia increased [Unknown]
  - Cerebrovascular accident [Unknown]
  - Hepato-lenticular degeneration [Fatal]

NARRATIVE: CASE EVENT DATE: 2016
